FAERS Safety Report 24578693 (Version 1)
Quarter: 2024Q4

REPORT INFORMATION
  Report Type: Spontaneous
  Country: US (occurrence: US)
  Receive Date: 20241105
  Receipt Date: 20241105
  Transmission Date: 20250115
  Serious: No
  Sender: SANDOZ
  Company Number: US-SANDOZ-SDZ2024US043773

PATIENT
  Age: 66 Year
  Sex: Female

DRUGS (1)
  1. HYRIMOZ [Suspect]
     Active Substance: ADALIMUMAB-ADAZ
     Indication: Product used for unknown indication
     Dosage: 40 MG, Q2W
     Route: 050
     Dates: start: 20240420

REACTIONS (2)
  - Circumstance or information capable of leading to device use error [Unknown]
  - Needle issue [Unknown]

NARRATIVE: CASE EVENT DATE: 20240420
